FAERS Safety Report 17500251 (Version 4)
Quarter: 2020Q3

REPORT INFORMATION
  Report Type: Spontaneous
  Country: US (occurrence: US)
  Receive Date: 20200305
  Receipt Date: 20200714
  Transmission Date: 20201102
  Serious: Yes (Death, Hospitalization, Other)
  Sender: FDA-Public Use
  Company Number: US-TEVA-2020-US-1194470

PATIENT
  Age: 67 Year
  Sex: Male

DRUGS (7)
  1. IRINOTECAN [Concomitant]
     Active Substance: IRINOTECAN
  2. OPDIVO [Concomitant]
     Active Substance: NIVOLUMAB
  3. CARBOPLATIN. [Concomitant]
     Active Substance: CARBOPLATIN
  4. KEYTRUDA [Concomitant]
     Active Substance: PEMBROLIZUMAB
  5. AVASTIN [Concomitant]
     Active Substance: BEVACIZUMAB
  6. TEMOZOLOMIDE. [Suspect]
     Active Substance: TEMOZOLOMIDE
     Indication: GLIOBLASTOMA
     Route: 065
  7. TEMOZOLOMIDE. [Suspect]
     Active Substance: TEMOZOLOMIDE
     Route: 065
     Dates: start: 20200306, end: 20200310

REACTIONS (5)
  - Dehydration [Fatal]
  - Malnutrition [Fatal]
  - Thrombocytopenia [Fatal]
  - Ileus [Fatal]
  - Glioblastoma [Fatal]

NARRATIVE: CASE EVENT DATE: 201904
